FAERS Safety Report 4535744-4 (Version None)
Quarter: 2004Q4

REPORT INFORMATION
  Report Type: 
  Country: None (occurrence: None)
  Receive Date: 20041220
  Receipt Date: 20041207
  Transmission Date: 20050328
  Serious: Yes (Other)
  Sender: FDA-Public Use
  Company Number: 2004106906

PATIENT
  Sex: Female

DRUGS (1)
  1. CELEBREX [Suspect]
     Indication: OSTEOARTHRITIS
     Dosage: (1 IN 2 D), ORA; 4 TO 5 YEARS AGO
     Route: 048

REACTIONS (5)
  - DRUG INEFFECTIVE [None]
  - FINGER DEFORMITY [None]
  - MEDICAL DEVICE COMPLICATION [None]
  - PAIN [None]
  - RHEUMATOID ARTHRITIS [None]
